FAERS Safety Report 6295242-7 (Version None)
Quarter: 2009Q3

REPORT INFORMATION
  Report Type: 
  Country: None (occurrence: None)
  Receive Date: 20090803
  Receipt Date: 20090722
  Transmission Date: 20100115
  Serious: Yes (Other)
  Sender: FDA-Public Use
  Company Number: PR-AVENTIS-200917538GDDC

PATIENT
  Age: 72 Year
  Sex: Male

DRUGS (2)
  1. LANTUS [Suspect]
     Route: 058
  2. PLAVIX [Suspect]

REACTIONS (2)
  - EYE DISORDER [None]
  - TRANSIENT ISCHAEMIC ATTACK [None]
